FAERS Safety Report 16343039 (Version 1)
Quarter: 2019Q3

REPORT INFORMATION
  Report Type: Spontaneous
  Country: US (occurrence: US)
  Receive Date: 20190521
  Receipt Date: 20190521
  Transmission Date: 20191004
  Serious: No
  Sender: FDA-Public Use
  Company Number: None

PATIENT
  Age: 55 Year
  Sex: Female
  Weight: 48.15 kg

DRUGS (4)
  1. CALCIUM [Concomitant]
     Active Substance: CALCIUM
  2. TAXOTERE [Suspect]
     Active Substance: DOCETAXEL
     Indication: BREAST CANCER
     Dates: start: 20131101, end: 20140115
  3. DOCETAXEL. [Concomitant]
     Active Substance: DOCETAXEL
  4. ANASTROZOLE. [Concomitant]
     Active Substance: ANASTROZOLE

REACTIONS (5)
  - Asocial behaviour [None]
  - Alopecia [None]
  - Self esteem decreased [None]
  - Depression [None]
  - Crying [None]

NARRATIVE: CASE EVENT DATE: 20131101
